FAERS Safety Report 5729033-X (Version None)
Quarter: 2008Q2

REPORT INFORMATION
  Report Type: 
  Country: None (occurrence: None)
  Receive Date: 20080505
  Receipt Date: 20080505
  Transmission Date: 20081010
  Serious: No
  Sender: FDA-Public Use
  Company Number: None

PATIENT
  Sex: Male
  Weight: 68.0396 kg

DRUGS (1)
  1. CRESTOR [Suspect]
     Indication: BLOOD CHOLESTEROL INCREASED
     Dosage: 40MG (CUT IN 1/2 EVERY EVE ORAL
     Route: 048

REACTIONS (5)
  - ANXIETY [None]
  - ASTHENIA [None]
  - CARDIAC DISORDER [None]
  - MEMORY IMPAIRMENT [None]
  - PAIN IN EXTREMITY [None]
